FAERS Safety Report 5649099-5 (Version None)
Quarter: 2008Q1

REPORT INFORMATION
  Report Type: 
  Country: None (occurrence: None)
  Receive Date: 20080304
  Receipt Date: 20080221
  Transmission Date: 20080703
  Serious: No
  Sender: FDA-Public Use
  Company Number: US-ELI_LILLY_AND_COMPANY-US200711003768

PATIENT
  Sex: Female
  Weight: 70.8 kg

DRUGS (1)
  1. FORTEO [Suspect]
     Dosage: UNK, UNK
     Dates: start: 20050101

REACTIONS (4)
  - BACK PAIN [None]
  - CONSTIPATION [None]
  - FATIGUE [None]
  - SPINAL FRACTURE [None]
